FAERS Safety Report 4893703-6 (Version None)
Quarter: 2006Q1

REPORT INFORMATION
  Report Type: 
  Country: None (occurrence: None)
  Receive Date: 20060127
  Receipt Date: 20050728
  Transmission Date: 20060701
  Serious: Yes (Other)
  Sender: FDA-Public Use
  Company Number: US-GLAXOSMITHKLINE-A0568193A

PATIENT
  Sex: Male
  Weight: 116.8 kg

DRUGS (3)
  1. PAXIL [Suspect]
     Indication: DEPRESSION
     Route: 048
     Dates: start: 19950101, end: 20031106
  2. ERYTHROMYCIN 2% TOPICAL GEL [Concomitant]
  3. CLARITIN [Concomitant]

REACTIONS (8)
  - AGITATION [None]
  - AKATHISIA [None]
  - DRUG WITHDRAWAL SYNDROME [None]
  - HOSTILITY [None]
  - MUSCLE SPASMS [None]
  - SOMNOLENCE [None]
  - SUICIDAL IDEATION [None]
  - SUICIDE ATTEMPT [None]
